FAERS Safety Report 8043333-2 (Version None)
Quarter: 2012Q1

REPORT INFORMATION
  Report Type: 
  Country: None (occurrence: None)
  Receive Date: 20120112
  Receipt Date: 20120106
  Transmission Date: 20120608
  Serious: Yes (Disabling)
  Sender: FDA-Public Use
  Company Number: JP-GLAXOSMITHKLINE-B0774261A

PATIENT
  Sex: Female
  Weight: 20 kg

DRUGS (13)
  1. ALKERAN [Suspect]
     Dosage: 50MGM2 PER DAY
     Route: 042
     Dates: start: 20080917, end: 20080918
  2. THIOTEPA [Suspect]
     Dosage: 150MGM2 PER DAY
     Dates: start: 20080917, end: 20080918
  3. IMMUNE GLOBULIN INTRAVENOUS (HUMAN) [Concomitant]
     Indication: PRODUCT USED FOR UNKNOWN INDICATION
     Route: 042
  4. MEROPENEM [Concomitant]
     Indication: SEPSIS
     Route: 042
     Dates: start: 20080923, end: 20081010
  5. THIOTEPA [Suspect]
     Indication: STEM CELL TRANSPLANT
     Dosage: 150MGM2 PER DAY
     Dates: start: 20080910, end: 20080911
  6. HIGH-CALORIE TRANSFUSION FLUID [Concomitant]
     Indication: MEDICAL DIET
     Route: 065
  7. IMMUNE GLOBULIN (HUMAN) [Concomitant]
     Indication: PRODUCT USED FOR UNKNOWN INDICATION
     Dosage: 2.5G AT NIGHT
     Route: 065
  8. NEUPOGEN [Concomitant]
     Indication: PRODUCT USED FOR UNKNOWN INDICATION
     Route: 065
     Dates: start: 20080923, end: 20081028
  9. NEUTROGIN [Concomitant]
     Route: 042
     Dates: start: 20080923, end: 20081028
  10. CEFPIROME [Concomitant]
     Indication: SEPSIS
     Route: 065
     Dates: start: 20080923, end: 20081028
  11. ALKERAN [Suspect]
     Indication: STEM CELL TRANSPLANT
     Dosage: 50MGM2 PER DAY
     Route: 042
     Dates: start: 20080910, end: 20080911
  12. TOBRAMYCIN [Concomitant]
     Indication: SEPSIS
     Route: 042
     Dates: start: 20080923, end: 20081001
  13. PRODIF [Concomitant]
     Indication: PRODUCT USED FOR UNKNOWN INDICATION
     Route: 065
     Dates: start: 20080922

REACTIONS (8)
  - ALANINE AMINOTRANSFERASE INCREASED [None]
  - INFECTION [None]
  - BONE MARROW FAILURE [None]
  - STOMATITIS [None]
  - BACTERIAL INFECTION [None]
  - PYREXIA [None]
  - SEPSIS [None]
  - DECREASED APPETITE [None]
